FAERS Safety Report 6078987-3 (Version None)
Quarter: 2009Q1

REPORT INFORMATION
  Report Type: 
  Country: None (occurrence: None)
  Receive Date: 20090216
  Receipt Date: 20090209
  Transmission Date: 20090719
  Serious: Yes (Death, Hospitalization, Other)
  Sender: FDA-Public Use
  Company Number: IT-ELI_LILLY_AND_COMPANY-IT200901002604

PATIENT
  Sex: Male
  Weight: 120 kg

DRUGS (11)
  1. BYETTA [Suspect]
     Indication: TYPE 2 DIABETES MELLITUS
     Dosage: 5 UG, 2/D
     Route: 058
     Dates: start: 20080904, end: 20080101
  2. BYETTA [Suspect]
     Dosage: 20 UG, DAILY (1/D)
     Route: 058
     Dates: start: 20081004, end: 20080101
  3. BYETTA [Suspect]
     Dosage: 10 UG, DAILY (1/D)
     Route: 058
     Dates: start: 20080101, end: 20081124
  4. TICLOPIDINE HCL [Concomitant]
     Dosage: UNK, UNKNOWN
     Route: 048
  5. LOVAZA [Concomitant]
     Dosage: UNK, UNKNOWN
     Route: 065
  6. LANSOPRAZOLE [Concomitant]
     Dosage: UNK, UNKNOWN
     Route: 048
  7. GLIBOMET [Concomitant]
     Indication: TYPE 2 DIABETES MELLITUS
     Dosage: 400MG+2.5MG, UNKNOWN
     Route: 048
     Dates: start: 19990101
  8. PROVISACOR [Concomitant]
     Dosage: UNK, UNKNOWN
     Route: 048
  9. QUARK [Concomitant]
     Dosage: 5 MG
     Route: 048
  10. VENITRIN [Concomitant]
     Dosage: UNK, UNKNOWN
     Route: 062
  11. ESKIM [Concomitant]
     Dosage: 1000 MG, UNKNOWN
     Route: 048

REACTIONS (5)
  - ANOREXIA [None]
  - MALAISE [None]
  - NAUSEA [None]
  - PYELOCALIECTASIS [None]
  - RENAL FAILURE ACUTE [None]
